FAERS Safety Report 20729351 (Version 1)
Quarter: 2022Q2

REPORT INFORMATION
  Report Type: Spontaneous
  Country: ID (occurrence: ID)
  Receive Date: 20220420
  Receipt Date: 20220420
  Transmission Date: 20220721
  Serious: No
  Sender: FDA-Public Use
  Company Number: ID-LUPIN PHARMACEUTICALS INC.-2022-05657

PATIENT
  Age: 31 Year
  Sex: Female

DRUGS (5)
  1. SILDENAFIL [Suspect]
     Active Substance: SILDENAFIL
     Indication: Pulmonary hypertension
     Dosage: 12.5 MG, TID
     Route: 065
  2. FUROSEMIDE [Suspect]
     Active Substance: FUROSEMIDE
     Indication: Pulmonary hypertension
     Dosage: 20 MG, BID
     Route: 065
  3. FUROSEMIDE [Suspect]
     Active Substance: FUROSEMIDE
     Indication: Atrial septal defect
  4. BERAPROST [Suspect]
     Active Substance: BERAPROST
     Indication: Pulmonary hypertension
     Dosage: 20 MICROGRAM, TID
     Route: 065
  5. BERAPROST [Suspect]
     Active Substance: BERAPROST
     Indication: Atrial septal defect

REACTIONS (2)
  - Exposure during pregnancy [Unknown]
  - Off label use [None]
